FAERS Safety Report 6053450-4 (Version None)
Quarter: 2009Q1

REPORT INFORMATION
  Report Type: 
  Country: None (occurrence: None)
  Receive Date: 20090127
  Receipt Date: 20080410
  Transmission Date: 20090719
  Serious: Yes (Hospitalization)
  Sender: FDA-Public Use
  Company Number: US-TEVA-169895USA

PATIENT

DRUGS (11)
  1. COPAXONE [Suspect]
     Indication: MULTIPLE SCLEROSIS
     Route: 058
  2. FLUOXETINE HCL [Concomitant]
  3. LOVASTATIN [Concomitant]
  4. DILTIAZEM [Concomitant]
  5. ACETYLSALICYLIC ACID [Concomitant]
  6. MODAFINIL [Concomitant]
  7. CETIRIZINE HYDROCHLORIDE [Concomitant]
  8. CALCIUM [Concomitant]
  9. MULTI-VITAMINS [Concomitant]
  10. ASCORBIC ACID [Concomitant]
  11. OMEGA FISH OIL [Concomitant]

REACTIONS (1)
  - PANCREATITIS [None]
